FAERS Safety Report 8860343 (Version 1)
Quarter: 2012Q4

REPORT INFORMATION
  Report Type: 
  Country: US (occurrence: US)
  Receive Date: 20121025
  Receipt Date: 20121025
  Transmission Date: 20130627
  Serious: No
  Sender: FDA-Public Use
  Company Number: US-PFIZER INC-2012264174

PATIENT

DRUGS (1)
  1. CHANTIX [Suspect]
     Dosage: UNK
     Dates: end: 201210

REACTIONS (5)
  - Chapped lips [Unknown]
  - Lip haemorrhage [Unknown]
  - Lip swelling [Unknown]
  - Lip pain [Unknown]
  - Lip dry [Unknown]
